FAERS Safety Report 21268614 (Version 1)
Quarter: 2022Q3

REPORT INFORMATION
  Report Type: Report from Study
  Country: US (occurrence: US)
  Receive Date: 20220830
  Receipt Date: 20220830
  Transmission Date: 20221027
  Serious: Yes (Hospitalization, Other)
  Sender: FDA-Public Use
  Company Number: US-TAKEDA-2021TUS068553

PATIENT
  Age: 55 Year
  Sex: Male
  Weight: 81 kg

DRUGS (12)
  1. TEDUGLUTIDE [Suspect]
     Active Substance: TEDUGLUTIDE
     Indication: Short-bowel syndrome
     Dosage: 3.8 MILLIGRAM, QD
     Route: 058
     Dates: start: 20210111
  2. TEDUGLUTIDE [Suspect]
     Active Substance: TEDUGLUTIDE
     Indication: Short-bowel syndrome
     Dosage: 3.8 MILLIGRAM, QD
     Route: 058
     Dates: start: 20210111
  3. TEDUGLUTIDE [Suspect]
     Active Substance: TEDUGLUTIDE
     Indication: Short-bowel syndrome
     Dosage: 3.8 MILLIGRAM, QD
     Route: 058
     Dates: start: 20210111
  4. TEDUGLUTIDE [Suspect]
     Active Substance: TEDUGLUTIDE
     Indication: Short-bowel syndrome
     Dosage: 3.8 MILLIGRAM, QD
     Route: 058
     Dates: start: 20210111
  5. TEDUGLUTIDE [Suspect]
     Active Substance: TEDUGLUTIDE
     Dosage: 3.89 MILLIGRAM, QD
     Route: 058
     Dates: start: 20211001
  6. TEDUGLUTIDE [Suspect]
     Active Substance: TEDUGLUTIDE
     Dosage: 3.89 MILLIGRAM, QD
     Route: 058
     Dates: start: 20211001
  7. TEDUGLUTIDE [Suspect]
     Active Substance: TEDUGLUTIDE
     Dosage: 3.89 MILLIGRAM, QD
     Route: 058
     Dates: start: 20211001
  8. TEDUGLUTIDE [Suspect]
     Active Substance: TEDUGLUTIDE
     Dosage: 3.89 MILLIGRAM, QD
     Route: 058
     Dates: start: 20211001
  9. TEDUGLUTIDE [Suspect]
     Active Substance: TEDUGLUTIDE
     Dosage: 3.8 MILLIGRAM, QD
     Route: 058
     Dates: start: 20211027
  10. TEDUGLUTIDE [Suspect]
     Active Substance: TEDUGLUTIDE
     Dosage: 3.8 MILLIGRAM, QD
     Route: 058
     Dates: start: 20211027
  11. TEDUGLUTIDE [Suspect]
     Active Substance: TEDUGLUTIDE
     Dosage: 3.8 MILLIGRAM, QD
     Route: 058
     Dates: start: 20211027
  12. TEDUGLUTIDE [Suspect]
     Active Substance: TEDUGLUTIDE
     Dosage: 3.8 MILLIGRAM, QD
     Route: 058
     Dates: start: 20211027

REACTIONS (9)
  - Device related sepsis [Unknown]
  - Pyrexia [Recovered/Resolved]
  - Chills [Recovered/Resolved]
  - Pain [Recovered/Resolved]
  - Sluggishness [Recovered/Resolved]
  - Gait disturbance [Recovered/Resolved]
  - Fatigue [Recovered/Resolved]
  - Feeling abnormal [Recovered/Resolved]
  - Headache [Recovered/Resolved]

NARRATIVE: CASE EVENT DATE: 20211104
